FAERS Safety Report 9690771 (Version 1)
Quarter: 2013Q4

REPORT INFORMATION
  Report Type: Spontaneous
  Country: US (occurrence: None)
  Receive Date: 20131114
  Receipt Date: 20131114
  Transmission Date: 20140711
  Serious: Yes (Hospitalization)
  Sender: FDA-Public Use
  Company Number: None

PATIENT
  Age: 74 Year
  Sex: Female
  Weight: 64 kg

DRUGS (3)
  1. RIVAROXABAN [Suspect]
     Indication: ATRIAL FIBRILLATION
     Route: 048
     Dates: start: 20130201, end: 20130308
  2. ASPIRIN [Concomitant]
  3. CLOPIDOGREL [Concomitant]

REACTIONS (2)
  - Upper gastrointestinal haemorrhage [None]
  - Haemoglobin decreased [None]
